FAERS Safety Report 19950589 (Version 1)
Quarter: 2021Q4

REPORT INFORMATION
  Report Type: Spontaneous
  Country: CN (occurrence: CN)
  Receive Date: 20211013
  Receipt Date: 20211013
  Transmission Date: 20220303
  Serious: Yes (Other)
  Sender: FDA-Public Use
  Company Number: CN-SLATE RUN PHARMACEUTICALS-21CN000717

PATIENT

DRUGS (3)
  1. VANCOMYCIN HYDROCHLORIDE [Suspect]
     Active Substance: VANCOMYCIN HYDROCHLORIDE
     Indication: Meningitis staphylococcal
     Dosage: 1 DOSAGE FORM, Q 8 HR
     Route: 042
  2. MEROPENEM [Concomitant]
     Active Substance: MEROPENEM
     Indication: Meningitis bacterial
     Dosage: 2 DOSAGE FORM, Q 8 HR
     Route: 042
  3. LEVETIRACETAM [Concomitant]
     Active Substance: LEVETIRACETAM
     Indication: Epilepsy
     Dosage: 1 DOSAGE FORM, BID

REACTIONS (7)
  - Central nervous system immune reconstitution inflammatory response [Recovering/Resolving]
  - Coma [Recovered/Resolved]
  - Abortion induced [Recovered/Resolved]
  - White matter lesion [Unknown]
  - Maternal exposure during pregnancy [Unknown]
  - Muscular weakness [Not Recovered/Not Resolved]
  - Pyrexia [Unknown]
